FAERS Safety Report 4336104-1 (Version None)
Quarter: 2004Q2

REPORT INFORMATION
  Report Type: 
  Country: None (occurrence: None)
  Receive Date: 20040407
  Receipt Date: 20040319
  Transmission Date: 20050107
  Serious: Yes (Life-Threatening)
  Sender: FDA-Public Use
  Company Number: 7740

PATIENT
  Age: 42 Year
  Sex: Male

DRUGS (3)
  1. METHOTREXATE [Suspect]
     Indication: RHEUMATOID ARTHRITIS
     Dosage: 15 MG WEEKLY, IM
     Route: 030
  2. ETANERCEPT [Suspect]
     Indication: RHEUMATOID ARTHRITIS
     Dosage: 25 MG 2/WK, SC
     Route: 058
     Dates: start: 20021113, end: 20030415
  3. PREDNISONE [Suspect]
     Indication: RHEUMATOID ARTHRITIS
     Dosage: 10 MG WEEKLY  , PO
     Route: 048

REACTIONS (3)
  - DRUG INTERACTION [None]
  - JOINT DESTRUCTION [None]
  - SEPTIC ARTHRITIS STAPHYLOCOCCAL [None]
